FAERS Safety Report 8135316-9 (Version None)
Quarter: 2012Q1

REPORT INFORMATION
  Report Type: 
  Country: None (occurrence: None)
  Receive Date: 20120214
  Receipt Date: 20110520
  Transmission Date: 20120608
  Serious: Yes (Other)
  Sender: FDA-Public Use
  Company Number: US-ROCHE-1031526

PATIENT

DRUGS (2)
  1. AVASTIN [Suspect]
     Indication: PROSTATE CANCER
  2. DOCETAXEL [Suspect]
     Indication: PROSTATE CANCER

REACTIONS (5)
  - HYPERSENSITIVITY [None]
  - COUGH [None]
  - LYMPHOPENIA [None]
  - FEBRILE NEUTROPENIA [None]
  - HYPERGLYCAEMIA [None]
